FAERS Safety Report 23857496 (Version 1)
Quarter: 2024Q2

REPORT INFORMATION
  Report Type: Spontaneous
  Country: KE (occurrence: KE)
  Receive Date: 20240515
  Receipt Date: 20240515
  Transmission Date: 20240716
  Serious: Yes (Other)
  Sender: FDA-Public Use
  Company Number: KE-BELUSA-2024BELLIT0051

PATIENT

DRUGS (7)
  1. HEPARIN SODIUM [Suspect]
     Active Substance: HEPARIN SODIUM
     Indication: Anticoagulant therapy
     Route: 065
  2. TENOFOVIR [Concomitant]
     Active Substance: TENOFOVIR
     Dosage: 300 MG ONCE DAILY
     Route: 065
  3. AMLODIPINE [Concomitant]
     Active Substance: AMLODIPINE BESYLATE
     Indication: Hypertension
     Dosage: 5 MG ONCE DAILY
     Route: 065
  4. LACTULOSE [Concomitant]
     Active Substance: LACTULOSE
     Dosage: 20 GM ONCE DAILY
     Route: 065
  5. CARVEDILOL [Concomitant]
     Active Substance: CARVEDILOL
     Indication: Hypertension
     Dosage: 12.5 MG TWICE DAILY
     Route: 065
  6. FUROSEMIDE [Concomitant]
     Active Substance: FUROSEMIDE
     Indication: Polyuria
     Route: 065
  7. RIFAXIMIN [Concomitant]
     Active Substance: RIFAXIMIN
     Route: 065

REACTIONS (1)
  - Drug ineffective [Unknown]
